FAERS Safety Report 6567678-8 (Version None)
Quarter: 2010Q1

REPORT INFORMATION
  Report Type: 
  Country: None (occurrence: None)
  Receive Date: 20100203
  Receipt Date: 20100128
  Transmission Date: 20100710
  Serious: Yes (Hospitalization, Other)
  Sender: FDA-Public Use
  Company Number: US-BIOGENIDEC-2005BI015409

PATIENT
  Sex: Female
  Weight: 108 kg

DRUGS (8)
  1. AVONEX [Suspect]
     Indication: MULTIPLE SCLEROSIS
     Route: 030
     Dates: start: 19980901, end: 20030101
  2. AVONEX [Suspect]
     Route: 030
     Dates: start: 20030101
  3. BENICAR [Concomitant]
     Indication: DRUG USE FOR UNKNOWN INDICATION
  4. AMANTADINE HCL [Concomitant]
     Indication: DRUG USE FOR UNKNOWN INDICATION
  5. LOVASTATIN [Concomitant]
     Indication: DRUG USE FOR UNKNOWN INDICATION
  6. FLUOXETINE [Concomitant]
     Indication: DRUG USE FOR UNKNOWN INDICATION
  7. GLUCOSAMINE [Concomitant]
     Indication: DRUG USE FOR UNKNOWN INDICATION
  8. MULTI-VITAMIN [Concomitant]
     Indication: DRUG USE FOR UNKNOWN INDICATION

REACTIONS (15)
  - BASAL CELL CARCINOMA [None]
  - CEREBROVASCULAR ACCIDENT [None]
  - CHILLS [None]
  - DYSPNOEA [None]
  - FATIGUE [None]
  - GAIT DISTURBANCE [None]
  - GASTROOESOPHAGEAL REFLUX DISEASE [None]
  - HYPERCHOLESTEROLAEMIA [None]
  - HYPERTENSION [None]
  - INFLUENZA LIKE ILLNESS [None]
  - LOSS OF CONTROL OF LEGS [None]
  - OVARIAN EPITHELIAL CANCER [None]
  - SLEEP APNOEA SYNDROME [None]
  - TREMOR [None]
  - TRIGEMINAL NEURALGIA [None]
